FAERS Safety Report 16059500 (Version 5)
Quarter: 2019Q4

REPORT INFORMATION
  Report Type: Report from Study
  Country: US (occurrence: US)
  Receive Date: 20190311
  Receipt Date: 20191203
  Transmission Date: 20200122
  Serious: Yes (Death)
  Sender: FDA-Public Use
  Company Number: US-ACTELION-A-US2019-187316

PATIENT
  Age: 69 Year
  Sex: Female
  Weight: 77.1 kg

DRUGS (18)
  1. PREDNISONE. [Concomitant]
     Active Substance: PREDNISONE
     Dosage: 5 MG, QD
     Route: 048
  2. UPTRAVI [Suspect]
     Active Substance: SELEXIPAG
     Dosage: UNK
     Route: 048
  3. UPTRAVI [Suspect]
     Active Substance: SELEXIPAG
     Dosage: 400 MCG, BID
     Route: 048
     Dates: end: 20190917
  4. ACYCLOVIR. [Concomitant]
     Active Substance: ACYCLOVIR
     Dosage: 200 MG, BID
  5. DEXAMETHASONE. [Concomitant]
     Active Substance: DEXAMETHASONE
     Dosage: 20 MG
     Route: 048
  6. XARELTO [Concomitant]
     Active Substance: RIVAROXABAN
     Dosage: 20 MG, QD
  7. ACETAMINOPHEN. [Concomitant]
     Active Substance: ACETAMINOPHEN
     Dosage: 1000 MG Q 8 HRS
     Route: 048
  8. CAPSAICIN. [Concomitant]
     Active Substance: CAPSAICIN
     Dosage: TID PRN
  9. OXYCODONE [Concomitant]
     Active Substance: OXYCODONE
     Dosage: 5 -10 MG Q 6 HRS, PRN
     Route: 048
  10. SODIUM BICARBONATE. [Concomitant]
     Active Substance: SODIUM BICARBONATE
     Dosage: 50 MEQ
     Route: 042
  11. FUROSEMIDE. [Concomitant]
     Active Substance: FUROSEMIDE
     Dosage: 20 MG
  12. LENALIDOMIDE [Concomitant]
     Active Substance: LENALIDOMIDE
     Dosage: 5 MG
  13. UPTRAVI [Suspect]
     Active Substance: SELEXIPAG
     Indication: PULMONARY ARTERIAL HYPERTENSION
     Dosage: 600 MG, BID
     Route: 048
  14. ZOLEDRONIC ACID [Concomitant]
     Active Substance: ZOLEDRONIC ACID
     Dosage: 4 MG, Q6HRS
     Route: 042
  15. SODIUM CHLORIDE. [Concomitant]
     Active Substance: SODIUM CHLORIDE
     Route: 042
  16. ADEMPAS [Concomitant]
     Active Substance: RIOCIGUAT
  17. TRAMADOL. [Concomitant]
     Active Substance: TRAMADOL
     Dosage: 50-100 MG, Q6HRS
     Route: 048
  18. SENNOSIDES A+B [Concomitant]
     Active Substance: SENNOSIDES A AND B
     Dosage: UNK, BID

REACTIONS (19)
  - Neuropathy peripheral [Unknown]
  - Pain in extremity [Unknown]
  - Diarrhoea [Unknown]
  - Blood creatinine increased [Unknown]
  - Drug intolerance [Unknown]
  - Localised infection [Unknown]
  - Circulatory collapse [Fatal]
  - Pulmonary embolism [Fatal]
  - Vertebroplasty [Unknown]
  - Troponin increased [Unknown]
  - Cardiac arrest [Fatal]
  - Haemoglobin decreased [Unknown]
  - Cardiac failure [Fatal]
  - Insomnia [Unknown]
  - Blood glucose increased [Unknown]
  - Heart rate increased [Unknown]
  - Carbon dioxide decreased [Unknown]
  - Dyspnoea [Fatal]
  - Pulse absent [Fatal]

NARRATIVE: CASE EVENT DATE: 20190917
